FAERS Safety Report 5506360-2 (Version None)
Quarter: 2007Q4

REPORT INFORMATION
  Report Type: 
  Country: None (occurrence: None)
  Receive Date: 20071105
  Receipt Date: 20071023
  Transmission Date: 20080405
  Serious: Yes (Hospitalization, Other)
  Sender: FDA-Public Use
  Company Number: US-AMGEN-QUU249320

PATIENT
  Sex: Male

DRUGS (1)
  1. ENBREL [Suspect]
     Indication: PSORIASIS
     Route: 058
     Dates: start: 20061001

REACTIONS (4)
  - COLLAPSE OF LUNG [None]
  - JOINT DISLOCATION [None]
  - LIMB INJURY [None]
  - RIB FRACTURE [None]
